FAERS Safety Report 8202242-6 (Version None)
Quarter: 2012Q1

REPORT INFORMATION
  Report Type: 
  Country: None (occurrence: None)
  Receive Date: 20120308
  Receipt Date: 20120224
  Transmission Date: 20120608
  Serious: Yes (Hospitalization)
  Sender: FDA-Public Use
  Company Number: DE-007783

PATIENT
  Age: 35 Year
  Sex: Female

DRUGS (10)
  1. MENOGON HP (MENOGON HP) (150 IU, 225 IU, 300 IU) [Suspect]
     Indication: IN VITRO FERTILISATION
     Dosage: (150 IU SUBCUTANEOUS), (225 IU SUBCUTANEOUS), (300 IU SUBCUTANEOUS)
     Route: 058
     Dates: start: 20120119, end: 20120122
  2. MENOGON HP (MENOGON HP) (150 IU, 225 IU, 300 IU) [Suspect]
     Indication: IN VITRO FERTILISATION
     Dosage: (150 IU SUBCUTANEOUS), (225 IU SUBCUTANEOUS), (300 IU SUBCUTANEOUS)
     Route: 058
     Dates: start: 20120114, end: 20120118
  3. MENOGON HP (MENOGON HP) (150 IU, 225 IU, 300 IU) [Suspect]
     Indication: IN VITRO FERTILISATION
     Dosage: (150 IU SUBCUTANEOUS), (225 IU SUBCUTANEOUS), (300 IU SUBCUTANEOUS)
     Route: 058
     Dates: start: 20120123, end: 20120124
  4. AMOXICILLIN [Concomitant]
  5. PROPOFOL [Concomitant]
  6. CETRORELIX [Concomitant]
  7. LEVOFLOXACIN [Concomitant]
  8. PANTOPRAZOL /01263202/) [Concomitant]
  9. ALFENTANIL [Concomitant]
  10. CRINONE [Concomitant]

REACTIONS (6)
  - OVARIAN HYPERSTIMULATION SYNDROME [None]
  - HYDROMETRA [None]
  - ABDOMINAL PAIN [None]
  - PERITONEAL DISORDER [None]
  - PYREXIA [None]
  - ENDOMETRITIS [None]
